FAERS Safety Report 8716201 (Version 3)
Quarter: 2013Q1

REPORT INFORMATION
  Report Type: Report from Study
  Country: JP (occurrence: JP)
  Receive Date: 20120829
  Receipt Date: 20130301
  Transmission Date: 20140127
  Serious: Yes (Hospitalization)
  Sender: FDA-Public Use
  Company Number: JP-MERCK-2012SP014484

PATIENT
  Age: 67 Year
  Sex: Male
  Weight: 67 kg

DRUGS (7)
  1. PEGINTRON [Suspect]
     Indication: CHRONIC HEPATITIS C
     Dosage: 1.0 MCG/KG/WEEK
     Route: 058
     Dates: start: 20120228, end: 20120308
  2. REBETOL [Suspect]
     Indication: CHRONIC HEPATITIS C
     Dosage: 800 MG, QD
     Route: 048
     Dates: start: 20120228, end: 20120308
  3. TELAVIC [Suspect]
     Indication: CHRONIC HEPATITIS C
     Dosage: 1500 MG, QD
     Route: 048
     Dates: start: 20120228, end: 20120308
  4. FULMETA [Concomitant]
     Indication: SKIN DISORDER
     Dosage: DAILY DOSE UNKNOWN
     Route: 061
     Dates: start: 20120308, end: 20120423
  5. ALLEGRA [Concomitant]
     Indication: SKIN DISORDER
     Dosage: 120 MG, QD
     Route: 048
     Dates: start: 20120308, end: 20120314
  6. URDESTON [Concomitant]
     Indication: HEPATITIS C
     Dosage: 600 MG, QD
     Route: 048
  7. GLYCYRON [Concomitant]
     Indication: HEPATITIS C
     Dosage: 3 DF, QD
     Route: 048

REACTIONS (1)
  - Drug eruption [Recovered/Resolved]
